FAERS Safety Report 5894873-3 (Version None)
Quarter: 2008Q3

REPORT INFORMATION
  Report Type: 
  Country: None (occurrence: None)
  Receive Date: 20080924
  Receipt Date: 20080717
  Transmission Date: 20090109
  Serious: Yes (Other)
  Sender: FDA-Public Use
  Company Number: US-ASTRAZENECA-2008UW14263

PATIENT
  Age: 45 Year
  Sex: Female

DRUGS (10)
  1. SEROQUEL [Suspect]
     Indication: BIPOLAR DISORDER
     Route: 048
     Dates: start: 20050101
  2. MECLIZINE [Concomitant]
  3. FUROSEMIDE [Concomitant]
  4. PRILOSEC [Concomitant]
     Route: 048
  5. THYROID MEDICINE [Concomitant]
  6. NASONEX [Concomitant]
  7. LORAZEPAM [Concomitant]
  8. POTASSIUM CHLORIDE [Concomitant]
  9. ERYTHROMYCIN [Concomitant]
  10. ZITHROMAX [Concomitant]

REACTIONS (1)
  - GRAND MAL CONVULSION [None]
